FAERS Safety Report 15350725 (Version 1)
Quarter: 2018Q4

REPORT INFORMATION
  Report Type: Spontaneous
  Country: MX (occurrence: MX)
  Receive Date: 20180905
  Receipt Date: 20180905
  Transmission Date: 20190204
  Serious: Yes (Hospitalization, Other)
  Sender: FDA-Public Use
  Company Number: MX-LUPIN PHARMACEUTICALS INC.-2018-06152

PATIENT
  Age: 67 Year
  Sex: Female

DRUGS (9)
  1. WARFARINE [Concomitant]
     Active Substance: WARFARIN
     Indication: PRODUCT USED FOR UNKNOWN INDICATION
     Dosage: 2.5 MG, QID
     Route: 065
  2. HYDROXYCHLOROQUINE [Suspect]
     Active Substance: HYDROXYCHLOROQUINE
     Indication: SYSTEMIC LUPUS ERYTHEMATOSUS
     Dosage: 200 MG, QD
     Route: 065
  3. AMIODARONE [Interacting]
     Active Substance: AMIODARONE
     Dosage: 200 MG, QID
     Route: 065
  4. AMIODARONE [Interacting]
     Active Substance: AMIODARONE
     Dosage: 900 MG, QD
     Route: 040
  5. HYDROXYCHLOROQUINE [Interacting]
     Active Substance: HYDROXYCHLOROQUINE
     Dosage: UNK
     Route: 065
  6. AMIODARONE [Interacting]
     Active Substance: AMIODARONE
     Dosage: UNK
     Route: 065
  7. HYDROXYCHLOROQUINE [Interacting]
     Active Substance: HYDROXYCHLOROQUINE
     Dosage: 200 MG, QID
     Route: 065
  8. AMIODARONE [Interacting]
     Active Substance: AMIODARONE
     Indication: ATRIAL FIBRILLATION
     Dosage: 300 MG, QD
     Route: 040
  9. FUROSEMIDE. [Concomitant]
     Active Substance: FUROSEMIDE
     Indication: PRODUCT USED FOR UNKNOWN INDICATION
     Dosage: 20 MG, QID
     Route: 065

REACTIONS (2)
  - Drug interaction [Unknown]
  - Long QT syndrome [Unknown]
